FAERS Safety Report 8390447-3 (Version None)
Quarter: 2012Q2

REPORT INFORMATION
  Report Type: 
  Country: None (occurrence: None)
  Receive Date: 20120529
  Receipt Date: 20120523
  Transmission Date: 20120825
  Serious: Yes (Hospitalization, Other)
  Sender: FDA-Public Use
  Company Number: US-ROXANE LABORATORIES, INC.-2012-RO-01262RO

PATIENT
  Sex: Male

DRUGS (26)
  1. TYLENOL [Concomitant]
  2. COLACE [Concomitant]
  3. HYDROCODONE BITARTRATE + ACETAMINOPHEN [Concomitant]
  4. SENNA-MINT WAF [Concomitant]
  5. HYTRIN [Concomitant]
  6. ELOTUZUMAB [Suspect]
     Indication: MULTIPLE MYELOMA
     Route: 042
     Dates: start: 20120319, end: 20120322
  7. ASPIRIN [Concomitant]
  8. PLAVIX [Concomitant]
  9. HYDRALAZINE HCL [Concomitant]
  10. ISOSORBIDE DINITRATE [Concomitant]
  11. LYRICA [Concomitant]
  12. HEPARIN [Concomitant]
  13. CEFTRIAXONE [Concomitant]
     Dates: start: 20120320, end: 20120320
  14. DEXAMETHASONE [Suspect]
     Indication: MULTIPLE MYELOMA
     Dosage: 4 MG
     Route: 048
     Dates: start: 20120319, end: 20120322
  15. NOVOLOG [Concomitant]
  16. LASIX [Concomitant]
     Dates: start: 20120127
  17. VESICARE [Concomitant]
     Dates: start: 20120127
  18. AZITHROMYCIN [Concomitant]
     Dates: start: 20120320, end: 20120320
  19. LIPITOR [Concomitant]
  20. CLONIDINE [Concomitant]
  21. CEFEPIME [Concomitant]
     Dates: start: 20120328
  22. LENALIDOMIDE [Suspect]
     Indication: MULTIPLE MYELOMA
     Dosage: 15 MG
     Route: 048
     Dates: start: 20120319, end: 20120322
  23. NORVASC [Concomitant]
  24. LANOXIN [Concomitant]
  25. OMEPRAZOLE [Concomitant]
  26. VANCOMYCIN [Concomitant]
     Dates: start: 20120326, end: 20120327

REACTIONS (6)
  - PYREXIA [None]
  - UPPER RESPIRATORY TRACT INFECTION [None]
  - GOUT [None]
  - SOFT TISSUE INFECTION [None]
  - DIABETES MELLITUS [None]
  - SKIN ULCER [None]
